FAERS Safety Report 13307030 (Version 1)
Quarter: 2017Q1

REPORT INFORMATION
  Report Type: Spontaneous
  Country: IR (occurrence: IR)
  Receive Date: 20170308
  Receipt Date: 20170308
  Transmission Date: 20170428
  Serious: Yes (Death, Hospitalization)
  Sender: FDA-Public Use
  Company Number: IR-INGENUS PHARMACEUTICALS NJ, LLC-ING201702-000098

PATIENT
  Age: 10 Year
  Sex: Male

DRUGS (1)
  1. PROBENECID AND COLCHICINE [Suspect]
     Active Substance: COLCHICINE\PROBENECID
     Route: 048

REACTIONS (20)
  - Agitation [Unknown]
  - Tachypnoea [Unknown]
  - Thrombocytopenia [Unknown]
  - Gastrointestinal haemorrhage [Unknown]
  - Haemorrhage [Unknown]
  - Hypotension [Unknown]
  - Pyrexia [Unknown]
  - Disseminated intravascular coagulation [Fatal]
  - Leukocytosis [Unknown]
  - Jaundice [Unknown]
  - Haematuria [Unknown]
  - Intentional overdose [Fatal]
  - Toxicity to various agents [Fatal]
  - Periorbital oedema [Unknown]
  - Abdominal tenderness [Unknown]
  - Depressed level of consciousness [Unknown]
  - Tachycardia [Unknown]
  - Rhabdomyolysis [Unknown]
  - Ecchymosis [Unknown]
  - Acute respiratory distress syndrome [Fatal]
